FAERS Safety Report 9378175 (Version 3)
Quarter: 2013Q3

REPORT INFORMATION
  Report Type: Spontaneous
  Country: CN (occurrence: CN)
  Receive Date: 20130701
  Receipt Date: 20130731
  Transmission Date: 20140515
  Serious: Yes (Hospitalization)
  Sender: FDA-Public Use
  Company Number: CN-GLAXOSMITHKLINE-B0903612A

PATIENT
  Age: 17 Year
  Sex: Female

DRUGS (2)
  1. LAMICTAL [Suspect]
     Indication: BIPOLAR DISORDER
     Route: 048
     Dates: start: 201306, end: 20130625
  2. VALPROIC ACID [Suspect]
     Indication: BIPOLAR DISORDER
     Dosage: 1G PER DAY
     Route: 048
     Dates: start: 201306

REACTIONS (4)
  - Pyrexia [Recovered/Resolved]
  - Asthenia [Recovering/Resolving]
  - Myalgia [Recovering/Resolving]
  - Off label use [Not Recovered/Not Resolved]
